FAERS Safety Report 17386516 (Version 4)
Quarter: 2020Q2

REPORT INFORMATION
  Report Type: Report from Study
  Country: DE (occurrence: DE)
  Receive Date: 20200206
  Receipt Date: 20200410
  Transmission Date: 20200713
  Serious: Yes (Other)
  Sender: FDA-Public Use
  Company Number: NVSC2020DE031996

PATIENT
  Sex: Female
  Weight: 46 kg

DRUGS (2)
  1. KISQALI [Suspect]
     Active Substance: RIBOCICLIB
     Indication: BREAST CANCER METASTATIC
     Dosage: 600 MG, QD (FREQUENCY POSSIBLY INTERCHANGED WITH ANASTRO)
     Route: 048
     Dates: start: 20191001
  2. ANASTROZOLE. [Suspect]
     Active Substance: ANASTROZOLE
     Indication: BREAST CANCER METASTATIC
     Dosage: 1 MG, QD (SCHEMA 21 DAYS INTAKE, 7 DAYS PAUSE [FREQUENCY POSSIBLY INTERCHANGED WITH KISQALI)
     Route: 048
     Dates: start: 20191001

REACTIONS (2)
  - Hyperthyroidism [Not Recovered/Not Resolved]
  - Thyroid mass [Unknown]

NARRATIVE: CASE EVENT DATE: 202001
